FAERS Safety Report 5931108-7 (Version None)
Quarter: 2008Q4

REPORT INFORMATION
  Report Type: 
  Country: None (occurrence: None)
  Receive Date: 20081027
  Receipt Date: 20081015
  Transmission Date: 20090506
  Serious: Yes (Other)
  Sender: FDA-Public Use
  Company Number: PHHY2008DE25121

PATIENT
  Age: 70 Year
  Sex: Female

DRUGS (4)
  1. ZOMETA [Suspect]
     Indication: PROPHYLAXIS
     Dosage: UNK
     Dates: start: 20080912
  2. ZOMETA [Suspect]
     Indication: OSTEOPOROSIS
  3. FEMARA [Concomitant]
     Indication: BREAST CANCER
     Dosage: 2.5 MG/DAY
     Route: 048
     Dates: start: 20080801
  4. RADIOTHERAPY [Concomitant]

REACTIONS (12)
  - APHASIA [None]
  - ARTHRALGIA [None]
  - DIZZINESS [None]
  - GAIT DISTURBANCE [None]
  - HEADACHE [None]
  - INFLUENZA LIKE ILLNESS [None]
  - MUSCLE SPASMS [None]
  - MYALGIA [None]
  - NAUSEA [None]
  - PYREXIA [None]
  - VERTIGO [None]
  - VESTIBULAR NEURONITIS [None]
